FAERS Safety Report 4847148-5 (Version None)
Quarter: 2005Q4

REPORT INFORMATION
  Report Type: 
  Country: None (occurrence: None)
  Receive Date: 20051205
  Receipt Date: 20051205
  Transmission Date: 20060501
  Serious: Yes (Hospitalization)
  Sender: FDA-Public Use
  Company Number: None

PATIENT
  Age: 7 Year
  Sex: Female
  Weight: 48.0813 kg

DRUGS (1)
  1. ADDERALL XR 25 [Suspect]
     Indication: ATTENTION DEFICIT/HYPERACTIVITY DISORDER
     Dosage: 25 MG DAILY ORAL   1 DOSE
     Route: 048
     Dates: start: 20051127

REACTIONS (7)
  - AGITATION [None]
  - DIZZINESS [None]
  - HALLUCINATION, AUDITORY [None]
  - HALLUCINATION, TACTILE [None]
  - HALLUCINATION, VISUAL [None]
  - HEADACHE [None]
  - NAUSEA [None]
